FAERS Safety Report 13406471 (Version 1)
Quarter: 2017Q2

REPORT INFORMATION
  Report Type: Spontaneous
  Country: IN (occurrence: IN)
  Receive Date: 20170405
  Receipt Date: 20170405
  Transmission Date: 20170830
  Serious: Yes (Other)
  Sender: FDA-Public Use
  Company Number: IN-G+W LABS-GW2017IN000113

PATIENT

DRUGS (1)
  1. TRIAMCINOLONE ACETONIDE. [Suspect]
     Active Substance: TRIAMCINOLONE ACETONIDE
     Indication: JOINT ANKYLOSIS
     Dosage: UNK
     Route: 014

REACTIONS (1)
  - Retinal artery occlusion [Recovering/Resolving]
